FAERS Safety Report 4947646-X (Version None)
Quarter: 2006Q1

REPORT INFORMATION
  Report Type: 
  Country: None (occurrence: None)
  Receive Date: 20060314
  Receipt Date: 20060130
  Transmission Date: 20060701
  Serious: Yes (Other)
  Sender: FDA-Public Use
  Company Number: 2006RL000029

PATIENT
  Age: 53 Year
  Sex: Male
  Weight: 99.3377 kg

DRUGS (6)
  1. OMACOR [Suspect]
     Indication: HYPERTRIGLYCERIDAEMIA
     Dosage: 4 GM; QD; PO
     Route: 048
     Dates: start: 20051027, end: 20060123
  2. DIOVAN [Concomitant]
  3. ZOLOFT [Concomitant]
  4. IMDUR [Concomitant]
  5. TOPROL-XL [Concomitant]
  6. TRICOR [Concomitant]

REACTIONS (2)
  - ATELECTASIS [None]
  - PANCREATITIS ACUTE [None]
